FAERS Safety Report 4587684-2 (Version None)
Quarter: 2005Q1

REPORT INFORMATION
  Report Type: 
  Country: None (occurrence: None)
  Receive Date: 20050218
  Receipt Date: 20030113
  Transmission Date: 20050727
  Serious: Yes (Hospitalization, Other)
  Sender: FDA-Public Use
  Company Number: US-MERCK-0301USA01113

PATIENT
  Age: 40 Year
  Sex: Male
  Weight: 68 kg

DRUGS (5)
  1. VIOXX [Suspect]
     Indication: PAIN
     Route: 048
     Dates: start: 20000529
  2. COUMADIN [Suspect]
     Route: 065
  3. PLAVIX [Suspect]
     Route: 065
     Dates: start: 20001205
  4. VITAMINS (UNSPECIFIED) [Concomitant]
     Route: 065
  5. ASPIRIN [Concomitant]
     Route: 065

REACTIONS (19)
  - BLOOD HOMOCYSTEINE INCREASED [None]
  - CARDIOVASCULAR DISORDER [None]
  - CEREBRAL INFARCTION [None]
  - CEREBROVASCULAR ACCIDENT [None]
  - CHEST PAIN [None]
  - CIRCULATORY COLLAPSE [None]
  - DIZZINESS [None]
  - DYSPNOEA [None]
  - DYSPNOEA EXERTIONAL [None]
  - FEELING OF BODY TEMPERATURE CHANGE [None]
  - HYPERLIPIDAEMIA [None]
  - HYPOAESTHESIA [None]
  - LIPOPROTEIN (A) INCREASED [None]
  - LOSS OF CONSCIOUSNESS [None]
  - PYREXIA [None]
  - RENAL DISORDER [None]
  - RENAL FAILURE [None]
  - SPEECH DISORDER [None]
  - VENTRICULAR EXTRASYSTOLES [None]
